FAERS Safety Report 5872094-8 (Version None)
Quarter: 2008Q3

REPORT INFORMATION
  Report Type: 
  Country: None (occurrence: None)
  Receive Date: 20080905
  Receipt Date: 20080901
  Transmission Date: 20090109
  Serious: Yes (Other)
  Sender: FDA-Public Use
  Company Number: B0360456A

PATIENT
  Age: 12 Year
  Sex: Female

DRUGS (4)
  1. PAROXETINE HCL [Suspect]
     Route: 065
     Dates: start: 20010309
  2. LUSTRAL [Concomitant]
     Dates: start: 20030522
  3. PROZAC [Concomitant]
     Dates: start: 20040607
  4. CHLORPHENIRAMINE MALEATE [Concomitant]

REACTIONS (20)
  - ACCIDENTAL OVERDOSE [None]
  - AGGRESSION [None]
  - CONVERSION DISORDER [None]
  - DEPRESSION [None]
  - DIARRHOEA [None]
  - DRUG WITHDRAWAL SYNDROME [None]
  - HEADACHE [None]
  - INCREASED APPETITE [None]
  - IRRITABILITY [None]
  - MALAISE [None]
  - MOOD SWINGS [None]
  - MUTISM [None]
  - NAUSEA [None]
  - NIGHTMARE [None]
  - OROPHARYNGEAL PAIN [None]
  - POLLAKIURIA [None]
  - SEDATION [None]
  - SUICIDAL IDEATION [None]
  - TEARFULNESS [None]
  - WEIGHT INCREASED [None]
